FAERS Safety Report 9236351 (Version 2)
Quarter: 2013Q2

REPORT INFORMATION
  Report Type: Spontaneous
  Country: IL (occurrence: IL)
  Receive Date: 20130417
  Receipt Date: 20130423
  Transmission Date: 20140414
  Serious: Yes (Other)
  Sender: FDA-Public Use
  Company Number: IL-US-EMD SERONO, INC.-7205052

PATIENT
  Age: 65 Year
  Sex: Female

DRUGS (4)
  1. REBIF [Suspect]
     Indication: RELAPSING-REMITTING MULTIPLE SCLEROSIS
     Route: 058
     Dates: start: 2000, end: 2000
  2. REBIF [Suspect]
     Route: 058
     Dates: start: 2000
  3. NORMITEN [Concomitant]
     Indication: BLOOD PRESSURE INCREASED
     Route: 048
  4. ELTROXIN [Concomitant]
     Indication: HYPOTHYROIDISM
     Route: 048

REACTIONS (4)
  - Suicide attempt [Recovered/Resolved]
  - Multiple sclerosis [Not Recovered/Not Resolved]
  - Insomnia [Recovered/Resolved]
  - Depression [Recovered/Resolved]
